FAERS Safety Report 7150506-X (Version None)
Quarter: 2010Q4

REPORT INFORMATION
  Report Type: 
  Country: None (occurrence: None)
  Receive Date: 20101210
  Receipt Date: 20101209
  Transmission Date: 20110411
  Serious: Yes (Hospitalization)
  Sender: FDA-Public Use
  Company Number: CH-PFIZER INC-2010167844

PATIENT
  Age: 63 Year
  Sex: Male

DRUGS (2)
  1. DIFLUCAN [Suspect]
     Dosage: 200 MG, 2X/DAY
     Route: 048
     Dates: start: 20101001, end: 20101101
  2. DRONEDARONE HCL [Interacting]
     Dosage: 400 MG, 2X/DAY
     Route: 048
     Dates: end: 20101101

REACTIONS (2)
  - DRUG INTERACTION [None]
  - ELECTROCARDIOGRAM QT PROLONGED [None]
